FAERS Safety Report 8235363-2 (Version None)
Quarter: 2012Q1

REPORT INFORMATION
  Report Type: 
  Country: None (occurrence: None)
  Receive Date: 20120322
  Receipt Date: 20120316
  Transmission Date: 20120608
  Serious: Yes (Hospitalization)
  Sender: FDA-Public Use
  Company Number: 2011SP056194

PATIENT
  Age: 24 Year
  Sex: Female
  Weight: 81.6475 kg

DRUGS (1)
  1. NUVARING [Suspect]
     Indication: MENSTRUAL CYCLE MANAGEMENT
     Dates: start: 20070101, end: 20091231

REACTIONS (6)
  - MIGRAINE [None]
  - PULMONARY EMBOLISM [None]
  - HAEMORRHAGIC DISORDER [None]
  - LUNG DISORDER [None]
  - HYPERCOAGULATION [None]
  - DEEP VEIN THROMBOSIS [None]
